FAERS Safety Report 4562600-8 (Version None)
Quarter: 2005Q1

REPORT INFORMATION
  Report Type: 
  Country: None (occurrence: None)
  Receive Date: 20050127
  Receipt Date: 20050118
  Transmission Date: 20050727
  Serious: Yes (Disabling)
  Sender: FDA-Public Use
  Company Number: US-ROCHE-393026

PATIENT
  Age: 54 Year
  Sex: Male
  Weight: 70.8 kg

DRUGS (2)
  1. PEG-INTERFERON ALFA 2A (RO 25-8310) [Suspect]
     Route: 058
     Dates: start: 20040614, end: 20050118
  2. RIBAVIRIN [Suspect]
     Route: 048
     Dates: start: 20040614

REACTIONS (4)
  - DEAFNESS [None]
  - DIFFICULTY IN WALKING [None]
  - DIZZINESS [None]
  - TINNITUS [None]
